FAERS Safety Report 5095288-0 (Version None)
Quarter: 2006Q3

REPORT INFORMATION
  Report Type: 
  Country: None (occurrence: None)
  Receive Date: 20060731
  Receipt Date: 20060420
  Transmission Date: 20061208
  Serious: No
  Sender: FDA-Public Use
  Company Number: 2006PV012391

PATIENT
  Age: 64 Year
  Sex: Male
  Weight: 90.7194 kg

DRUGS (11)
  1. BYETTA [Suspect]
     Indication: DIABETES MELLITUS NON-INSULIN-DEPENDENT
     Dosage: 10 MG, BID; SC, 5 MCG, BID, SC
     Route: 058
     Dates: start: 20060314, end: 20060411
  2. BYETTA [Suspect]
     Indication: DIABETES MELLITUS NON-INSULIN-DEPENDENT
     Dosage: 10 MG, BID; SC, 5 MCG, BID, SC
     Route: 058
     Dates: start: 20060412
  3. GLUCOPHAGE [Concomitant]
  4. ACTOS [Concomitant]
  5. ACTOS [Concomitant]
  6. COZAAR [Concomitant]
  7. TRICOR [Concomitant]
  8. NEXIUM [Concomitant]
  9. ZOCOR [Concomitant]
  10. METANX [Concomitant]
  11. AMARYL [Concomitant]

REACTIONS (7)
  - ABDOMINAL DISTENSION [None]
  - CHANGE OF BOWEL HABIT [None]
  - DEFAECATION URGENCY [None]
  - FEELING ABNORMAL [None]
  - FLATULENCE [None]
  - GLYCOSYLATED HAEMOGLOBIN INCREASED [None]
  - WEIGHT DECREASED [None]
